FAERS Safety Report 6099301-3 (Version None)
Quarter: 2009Q1

REPORT INFORMATION
  Report Type: 
  Country: None (occurrence: None)
  Receive Date: 20090303
  Receipt Date: 20090227
  Transmission Date: 20090719
  Serious: Yes (Death)
  Sender: FDA-Public Use
  Company Number: FR-JNJFOC-20090105111

PATIENT
  Sex: Female

DRUGS (5)
  1. RISPERDAL [Suspect]
     Indication: SCHIZOPHRENIA
     Route: 048
  2. TERCIAN [Concomitant]
     Indication: ANXIETY
     Route: 048
  3. TRILEPTOL [Concomitant]
     Indication: AFFECTIVE DISORDER
     Route: 048
  4. TEMESTA [Concomitant]
     Indication: ANXIETY
     Route: 048
  5. IMOVANE [Concomitant]
     Indication: INSOMNIA
     Route: 048

REACTIONS (1)
  - SUDDEN DEATH [None]
